FAERS Safety Report 7248839 (Version 5)
Quarter: 2015Q2

REPORT INFORMATION
  Report Type: Report from Study
  Country: CA (occurrence: CA)
  Receive Date: 20100119
  Receipt Date: 20150602
  Transmission Date: 20150821
  Serious: Yes (Hospitalization, Other)
  Sender: FDA-Public Use
  Company Number: PHHY2009CA56003

PATIENT
  Age: 73 Year
  Sex: Female

DRUGS (1)
  1. SANDOSTATIN LAR DEPOT [Suspect]
     Active Substance: OCTREOTIDE ACETATE
     Indication: NEUROENDOCRINE TUMOUR
     Dosage: 30 MG EVERY 4 WEEKS
     Route: 030
     Dates: start: 20091211

REACTIONS (21)
  - Urinary tract infection [Recovering/Resolving]
  - Peripheral swelling [Unknown]
  - Hyperhidrosis [Unknown]
  - Hypoaesthesia [Unknown]
  - Skin discolouration [Unknown]
  - Decreased appetite [Unknown]
  - Headache [Unknown]
  - Skin burning sensation [Unknown]
  - Nervousness [Unknown]
  - Paraesthesia [Unknown]
  - Blood glucose increased [Recovering/Resolving]
  - Blood potassium decreased [Unknown]
  - Chromaturia [Unknown]
  - Oedema peripheral [Unknown]
  - Nausea [Unknown]
  - Type 2 diabetes mellitus [Unknown]
  - Urine abnormality [Unknown]
  - Abdominal pain upper [Unknown]
  - Blood pressure increased [Unknown]
  - Flushing [Unknown]
  - Rash pruritic [Unknown]

NARRATIVE: CASE EVENT DATE: 20150428
